FAERS Safety Report 19162817 (Version 1)
Quarter: 2021Q2

REPORT INFORMATION
  Report Type: Spontaneous
  Country: US (occurrence: US)
  Receive Date: 20210419
  Receipt Date: 20210419
  Transmission Date: 20210717
  Serious: Yes (Other)
  Sender: FDA-Public Use
  Company Number: None

PATIENT
  Age: 24 Year
  Sex: Male
  Weight: 58 kg

DRUGS (1)
  1. EXTENZE MALE ENHANCEMENT SUPPLEMENT [Suspect]
     Active Substance: DIETARY SUPPLEMENT
     Indication: MALE SEXUAL DYSFUNCTION
     Dosage: ?          OTHER FREQUENCY:ONCE;?
     Route: 048
     Dates: start: 20210123, end: 20210123

REACTIONS (5)
  - Chills [None]
  - Tachycardia [None]
  - Anxiety [None]
  - Dyspnoea [None]
  - Chest pain [None]

NARRATIVE: CASE EVENT DATE: 20210123
